FAERS Safety Report 7555546-4 (Version None)
Quarter: 2011Q2

REPORT INFORMATION
  Report Type: 
  Country: None (occurrence: None)
  Receive Date: 20110617
  Receipt Date: 20050608
  Transmission Date: 20111010
  Serious: Yes (Life-Threatening, Hospitalization)
  Sender: FDA-Public Use
  Company Number: PHHO2005JP08327

PATIENT
  Sex: Female

DRUGS (4)
  1. FRANDOL [Concomitant]
     Indication: ANGINA PECTORIS
     Dosage: 40 MG, TID
     Dates: start: 20030627, end: 20040727
  2. NORVASC [Concomitant]
     Indication: HYPERTENSION
     Dosage: 5 MG, UNK
     Route: 048
     Dates: start: 20030117, end: 20040427
  3. DIOVAN [Suspect]
     Indication: HYPERTENSION
     Dosage: 80 MG DAILY
     Route: 048
     Dates: start: 20030328, end: 20040727
  4. AMOBAN [Concomitant]
     Indication: INSOMNIA
     Dosage: 7.5 MG, UNK
     Route: 048
     Dates: start: 20030617, end: 20040727

REACTIONS (2)
  - SHOCK [None]
  - AORTIC ANEURYSM RUPTURE [None]
